FAERS Safety Report 7971849-3 (Version None)
Quarter: 2011Q4

REPORT INFORMATION
  Report Type: 
  Country: None (occurrence: None)
  Receive Date: 20111122
  Receipt Date: 20110802
  Transmission Date: 20120403
  Serious: No
  Sender: FDA-Public Use
  Company Number: PHHY2011US29856

PATIENT
  Age: 50 Year
  Sex: Female

DRUGS (8)
  1. GILENYA [Suspect]
     Indication: RELAPSING-REMITTING MULTIPLE SCLEROSIS
     Dosage: 0.5 MG, QD, ORAL; 0.5 MG, QOD, ORAL
     Route: 048
     Dates: start: 20110314, end: 20110601
  2. GABAPENTIN [Concomitant]
  3. ZANAFLEX [Concomitant]
  4. IBUPROFEN [Concomitant]
  5. AVINZA [Concomitant]
  6. BACLOFEN [Concomitant]
  7. OXYCODONE HCL [Concomitant]
  8. PROBIOTICS (MICROORGANISMS W/PROBIOTIC ACTION) (NO INGREDIENTS/SUBSTAN [Concomitant]

REACTIONS (6)
  - SINUSITIS [None]
  - INCORRECT DOSE ADMINISTERED [None]
  - TREMOR [None]
  - BALANCE DISORDER [None]
  - CONFUSIONAL STATE [None]
  - ASTHENIA [None]
